FAERS Safety Report 8521486-7 (Version None)
Quarter: 2012Q3

REPORT INFORMATION
  Report Type: 
  Country: None (occurrence: None)
  Receive Date: 20120719
  Receipt Date: 20120704
  Transmission Date: 20120928
  Serious: Yes (Hospitalization)
  Sender: FDA-Public Use
  Company Number: FR-WATSON-2012-11785

PATIENT
  Sex: Male

DRUGS (3)
  1. TRELSTAR [Suspect]
     Dosage: 11.25 MG, EVERY 3 MOS
     Route: 030
     Dates: start: 20120217, end: 20120217
  2. ANDROCUR [Suspect]
     Indication: PARAPHILIA
     Dosage: 50 MG, DAILY
     Route: 048
     Dates: start: 20111125, end: 20120504
  3. TRELSTAR [Suspect]
     Indication: PARAPHILIA
     Dosage: 11.25 MG, EVERY 3 MOS
     Route: 030
     Dates: start: 20111125, end: 20111125

REACTIONS (9)
  - SCIATICA [None]
  - GOUT [None]
  - THROMBOPHLEBITIS SUPERFICIAL [None]
  - INJURY [None]
  - ERYSIPELAS [None]
  - PULMONARY EMBOLISM [None]
  - LIGAMENT SPRAIN [None]
  - BACK PAIN [None]
  - DEEP VEIN THROMBOSIS [None]
